FAERS Safety Report 15679995 (Version 1)
Quarter: 2018Q4

REPORT INFORMATION
  Report Type: Spontaneous
  Country: JP (occurrence: JP)
  Receive Date: 20181203
  Receipt Date: 20181203
  Transmission Date: 20190205
  Serious: Yes (Hospitalization, Other)
  Sender: FDA-Public Use
  Company Number: JP-LUPIN PHARMACEUTICALS INC.-2018-08292

PATIENT
  Age: 75 Year
  Sex: Male

DRUGS (2)
  1. PHENYTOIN. [Suspect]
     Active Substance: PHENYTOIN
     Indication: POST-TRAUMATIC EPILEPSY
     Dosage: 200 MG, QD (2 YEARS AFTER THE ACCIDENT)
     Route: 065
  2. GABAPENTIN. [Suspect]
     Active Substance: GABAPENTIN
     Indication: POST-TRAUMATIC EPILEPSY
     Dosage: 600 MG, QD (2 YEARS AFTER THE ACCIDENT)
     Route: 065

REACTIONS (5)
  - Ataxia [Recovered/Resolved]
  - Memory impairment [Recovered/Resolved]
  - Hypothyroidism [Recovered/Resolved]
  - Eyelid ptosis [Recovered/Resolved]
  - Atrial fibrillation [Recovered/Resolved]
